FAERS Safety Report 4351595-8 (Version None)
Quarter: 2004Q2

REPORT INFORMATION
  Report Type: 
  Country: None (occurrence: None)
  Receive Date: 20040503
  Receipt Date: 20040423
  Transmission Date: 20050107
  Serious: Yes (Hospitalization)
  Sender: FDA-Public Use
  Company Number: DE-AMGEN-US074111

PATIENT
  Sex: Male

DRUGS (3)
  1. ENBREL [Suspect]
     Indication: JUVENILE ARTHRITIS
     Route: 058
     Dates: start: 20030301, end: 20040104
  2. METHOTREXATE [Concomitant]
     Dates: start: 20020701
  3. PROXEN [Concomitant]
     Dates: start: 20020101

REACTIONS (4)
  - ARTHRITIS INFECTIVE [None]
  - JOINT EFFUSION [None]
  - MONARTHRITIS [None]
  - PROPIONIBACTERIUM INFECTION [None]
